FAERS Safety Report 5813913-0 (Version None)
Quarter: 2008Q3

REPORT INFORMATION
  Report Type: 
  Country: None (occurrence: None)
  Receive Date: 20080715
  Receipt Date: 20080707
  Transmission Date: 20090109
  Serious: Yes (Hospitalization, Other)
  Sender: FDA-Public Use
  Company Number: 163-21880-08060364

PATIENT
  Age: 59 Year
  Sex: Male
  Weight: 107 kg

DRUGS (4)
  1. REVLIMID [Suspect]
     Indication: MULTIPLE MYELOMA
     Dosage: 25 MG, DAYS 1-21, ORAL; 20 MG, ORAL
     Route: 048
     Dates: start: 20080609, end: 20080624
  2. REVLIMID [Suspect]
     Indication: MULTIPLE MYELOMA
     Dosage: 25 MG, DAYS 1-21, ORAL; 20 MG, ORAL
     Route: 048
     Dates: start: 20080101
  3. DEXAMETHASONE [Suspect]
     Indication: MULTIPLE MYELOMA
  4. DOXIL [Suspect]
     Indication: DRUG USE FOR UNKNOWN INDICATION

REACTIONS (3)
  - ASTHMA [None]
  - HYPOKALAEMIA [None]
  - PNEUMONIA [None]
